FAERS Safety Report 18778015 (Version 1)
Quarter: 2021Q1

REPORT INFORMATION
  Report Type: Spontaneous
  Country: US (occurrence: US)
  Receive Date: 20210123
  Receipt Date: 20210123
  Transmission Date: 20210419
  Serious: Yes (Other)
  Sender: FDA-Public Use
  Company Number: US-ACCORD-215452

PATIENT
  Age: 70 Year
  Sex: Male

DRUGS (1)
  1. ATORVASTATIN/ATORVASTATIN CALCIUM [Suspect]
     Active Substance: ATORVASTATIN CALCIUM
     Indication: CORONARY ARTERY DISEASE
     Dosage: HIGH DOSE

REACTIONS (2)
  - Muscle necrosis [Recovering/Resolving]
  - Immune-mediated myositis [Recovering/Resolving]
